FAERS Safety Report 5002040-0 (Version None)
Quarter: 2006Q2

REPORT INFORMATION
  Report Type: 
  Country: None (occurrence: None)
  Receive Date: 20060515
  Receipt Date: 20051128
  Transmission Date: 20061013
  Serious: Yes (Hospitalization, Disabling)
  Sender: FDA-Public Use
  Company Number: US-MERCK-0511USA04332

PATIENT
  Age: 47 Year
  Sex: Male
  Weight: 109 kg

DRUGS (4)
  1. VIOXX [Suspect]
     Indication: ANALGESIC EFFECT
     Route: 048
     Dates: start: 20020201, end: 20021001
  2. VIOXX [Suspect]
     Route: 048
     Dates: start: 20011001
  3. VIOXX [Suspect]
     Indication: ARTHRITIS
     Route: 048
     Dates: start: 20020201, end: 20021001
  4. VIOXX [Suspect]
     Route: 048
     Dates: start: 20011001

REACTIONS (6)
  - ANGINA UNSTABLE [None]
  - CHEST PAIN [None]
  - CORONARY ARTERY DISEASE [None]
  - DIZZINESS [None]
  - DYSPNOEA [None]
  - MYOCARDIAL INFARCTION [None]
